FAERS Safety Report 19349617 (Version 1)
Quarter: 2021Q2

REPORT INFORMATION
  Report Type: Spontaneous
  Country: US (occurrence: US)
  Receive Date: 20210531
  Receipt Date: 20210531
  Transmission Date: 20210717
  Serious: Yes (Disabling)
  Sender: FDA-Public Use
  Company Number: None

PATIENT
  Age: 44 Year
  Sex: Female
  Weight: 78.3 kg

DRUGS (5)
  1. FYCOMPA [Suspect]
     Active Substance: PERAMPANEL
     Indication: EPILEPSY
     Dosage: ?          QUANTITY:1 TABLET(S);?
     Route: 048
  2. ZONISAMIDE. [Concomitant]
     Active Substance: ZONISAMIDE
  3. IRON AND BIOTIN [Concomitant]
  4. EUTHYROX [Concomitant]
     Active Substance: LEVOTHYROXINE SODIUM
  5. DAILY MULTIVITAMIN [Concomitant]
     Active Substance: VITAMINS

REACTIONS (2)
  - Alopecia [None]
  - Weight increased [None]

NARRATIVE: CASE EVENT DATE: 20210531
